FAERS Safety Report 7756615-6 (Version None)
Quarter: 2011Q3

REPORT INFORMATION
  Report Type: 
  Country: None (occurrence: None)
  Receive Date: 20110916
  Receipt Date: 20110910
  Transmission Date: 20111222
  Serious: Yes (Other)
  Sender: FDA-Public Use
  Company Number: PHHY2011BR80672

PATIENT
  Sex: Male

DRUGS (2)
  1. DEPAKENE [Concomitant]
     Dosage: 300 MG, UNK
  2. TEGRETOL-XR [Suspect]
     Dosage: 200 MG, UNK

REACTIONS (2)
  - DRUG INEFFECTIVE [None]
  - CENTRAL NERVOUS SYSTEM LESION [None]
